FAERS Safety Report 6918976-7 (Version None)
Quarter: 2010Q3

REPORT INFORMATION
  Report Type: 
  Country: None (occurrence: None)
  Receive Date: 20100726
  Receipt Date: 20090630
  Transmission Date: 20110219
  Serious: No
  Sender: FDA-Public Use
  Company Number: 2009-00276

PATIENT
  Sex: Female
  Weight: 57.6068 kg

DRUGS (2)
  1. ZICAM COLD REMEDY NASAL GEL [Suspect]
     Dosage: QD
     Dates: start: 20080101, end: 20090101
  2. ZICAM COLD REMEDY NASAL GEL [Suspect]
     Dosage: QD
     Dates: start: 20080101, end: 20090101

REACTIONS (2)
  - AGEUSIA [None]
  - ANOSMIA [None]
